FAERS Safety Report 21810363 (Version 1)
Quarter: 2023Q1

REPORT INFORMATION
  Report Type: Spontaneous
  Country: FR (occurrence: FR)
  Receive Date: 20230103
  Receipt Date: 20230103
  Transmission Date: 20230418
  Serious: Yes (Hospitalization)
  Sender: FDA-Public Use
  Company Number: None

PATIENT
  Age: 42 Year
  Sex: Female

DRUGS (4)
  1. AMOXICILLIN [Suspect]
     Active Substance: AMOXICILLIN
     Indication: Otitis externa
     Dosage: UNK
     Route: 048
     Dates: start: 20210726, end: 20210728
  2. PRISTINAMYCIN [Suspect]
     Active Substance: PRISTINAMYCIN
     Indication: Otitis externa
     Dosage: UNK
     Route: 048
     Dates: start: 20210728, end: 20210730
  3. PHLOROGLUCINOL\1,3,5-TRIMETHOXYBENZENE [Suspect]
     Active Substance: PHLOROGLUCINOL\1,3,5-TRIMETHOXYBENZENE
     Indication: Product used for unknown indication
     Dosage: UNK
     Route: 048
     Dates: start: 20210728, end: 20210730
  4. BILASTINE [Suspect]
     Active Substance: BILASTINE
     Indication: Product used for unknown indication
     Dosage: UNK
     Route: 048
     Dates: start: 20210728, end: 20210730

REACTIONS (1)
  - Acute generalised exanthematous pustulosis [Recovered/Resolved]

NARRATIVE: CASE EVENT DATE: 20210730
